FAERS Safety Report 7354783-1 (Version None)
Quarter: 2011Q1

REPORT INFORMATION
  Report Type: 
  Country: None (occurrence: None)
  Receive Date: 20110316
  Receipt Date: 20110218
  Transmission Date: 20110831
  Serious: No
  Sender: FDA-Public Use
  Company Number: US-B.I. PHARMACEUTICALS,INC./RIDGEFIELD-2011-BP-06337BP

PATIENT
  Age: 55 Year
  Sex: Female

DRUGS (10)
  1. SUPER B COMPLEX [Concomitant]
     Indication: ANAEMIA
  2. PAPAYA ENZYME [Concomitant]
     Indication: DYSPEPSIA
  3. MUCINEX [Concomitant]
     Indication: CHRONIC OBSTRUCTIVE PULMONARY DISEASE
  4. MILK THISTLE [Concomitant]
     Indication: BLOOD CHOLESTEROL INCREASED
  5. TRIAMTERENE HCT [Concomitant]
     Indication: DIURETIC THERAPY
  6. SYMBICORT [Concomitant]
     Indication: CHRONIC OBSTRUCTIVE PULMONARY DISEASE
  7. LEVOXYL [Concomitant]
     Indication: HYPOTHYROIDISM
  8. CETIRIZINE [Concomitant]
     Indication: MULTIPLE ALLERGIES
  9. SPIRIVA [Suspect]
     Indication: CHRONIC OBSTRUCTIVE PULMONARY DISEASE
     Dosage: 18 MCG
     Route: 055
     Dates: start: 20090101
  10. SELENIUM [Concomitant]
     Indication: CARDIAC DISORDER
     Dosage: 100 MCG

REACTIONS (1)
  - CHRONIC OBSTRUCTIVE PULMONARY DISEASE [None]
